FAERS Safety Report 23259188 (Version 1)
Quarter: 2023Q4

REPORT INFORMATION
  Report Type: Spontaneous
  Country: BE (occurrence: None)
  Receive Date: 20231204
  Receipt Date: 20231204
  Transmission Date: 20240109
  Serious: Yes (Death, Other)
  Sender: FDA-Public Use
  Company Number: 2023A273895

PATIENT
  Age: 62 Year

DRUGS (5)
  1. IMFINZI [Suspect]
     Active Substance: DURVALUMAB
     Dosage: DURVALUMAB MAINTENANCE (10 CYCLES - FEBRUARY 2023-OCTOBER 2023)
  2. ACYCLOVIR [Concomitant]
     Active Substance: ACYCLOVIR
     Dosage: 800 3/DAY
     Route: 042
  3. DEXAMETHASONE [Concomitant]
     Active Substance: DEXAMETHASONE
     Dosage: 40 MG/DAY
  4. CISPLATIN [Concomitant]
     Active Substance: CISPLATIN
  5. NAVELBINE [Concomitant]
     Active Substance: VINORELBINE TARTRATE

REACTIONS (3)
  - Respiratory paralysis [Fatal]
  - Myelitis transverse [Unknown]
  - Neuromyelitis optica spectrum disorder [Unknown]

NARRATIVE: CASE EVENT DATE: 20111126
